FAERS Safety Report 25669460 (Version 1)
Quarter: 2025Q3

REPORT INFORMATION
  Report Type: Spontaneous
  Country: US (occurrence: None)
  Receive Date: 20250811
  Receipt Date: 20250811
  Transmission Date: 20251020
  Serious: Yes (unspecified)
  Sender: FDA-CTU
  Company Number: None

PATIENT
  Age: 42 Year
  Sex: Female
  Weight: 53.1 kg

DRUGS (1)
  1. CYANOCOBALAMIN [Suspect]
     Active Substance: CYANOCOBALAMIN
     Indication: Hypovitaminosis
     Dates: start: 20241220, end: 20250220

REACTIONS (5)
  - Illness [None]
  - Influenza [None]
  - Movement disorder [None]
  - Chest pain [None]
  - Toxicity to various agents [None]

NARRATIVE: CASE EVENT DATE: 20241220
